FAERS Safety Report 18499620 (Version 1)
Quarter: 2020Q4

REPORT INFORMATION
  Report Type: Spontaneous
  Country: AT (occurrence: AT)
  Receive Date: 20201112
  Receipt Date: 20201112
  Transmission Date: 20210114
  Serious: Yes (Hospitalization, Disabling)
  Sender: FDA-Public Use
  Company Number: AT-JNJFOC-20201103378

PATIENT
  Age: 39 Year
  Sex: Male
  Weight: 83 kg

DRUGS (37)
  1. ANAEROBEX [Concomitant]
     Active Substance: METRONIDAZOLE
     Indication: HELICOBACTER INFECTION
     Dosage: 500 MG ORAL 2X TGL
     Route: 048
     Dates: start: 20191227, end: 20200102
  2. PANTOPRAZOL [Concomitant]
     Active Substance: PANTOPRAZOLE SODIUM
     Indication: GASTROENTERITIS
     Dosage: GASTROENTERITIS  40MG P.O. 3X/D
     Dates: start: 20180109, end: 20180116
  3. PANTOPRAZOL [Concomitant]
     Active Substance: PANTOPRAZOLE SODIUM
     Dosage: HEARTBURN 40MG ORAL  08.01.2019  11.03.2019 1X/D AS NEEDED; AS REQUIRED
     Route: 048
     Dates: start: 20190108, end: 20190311
  4. STELARA [Suspect]
     Active Substance: USTEKINUMAB
     Indication: PSORIASIS
     Route: 058
     Dates: start: 20160509, end: 20170508
  5. GASTROLOC                          /00661201/ [Concomitant]
     Active Substance: OMEPRAZOLE
     Indication: DYSPEPSIA
     Route: 048
     Dates: start: 20191220
  6. GASTROLOC                          /00661201/ [Concomitant]
     Active Substance: OMEPRAZOLE
     Route: 048
     Dates: start: 20191220, end: 20200102
  7. AMOXICILLIN. [Concomitant]
     Active Substance: AMOXICILLIN
     Indication: HELICOBACTER INFECTION
     Dosage: 1000MG  ORAL  2X/D
     Route: 048
     Dates: start: 20191220, end: 20191226
  8. VIBROCIL 2,5 / 0,25 [Concomitant]
     Indication: INFLUENZA
     Dosage: 0,1 MG  NASAL  1X/D
     Route: 045
     Dates: start: 20181203, end: 20181210
  9. ANAEROBEX [Concomitant]
     Active Substance: METRONIDAZOLE
     Indication: HELICOBACTER INFECTION
     Dosage: 500MG ORAL  2X/D
     Route: 048
     Dates: start: 20191227, end: 20200102
  10. VOLTADOL GEL [Concomitant]
     Indication: NECK PAIN
     Dosage: TOPICAL 1X/D
     Route: 061
     Dates: start: 20181125, end: 20190311
  11. PANTOPRAZOL [Concomitant]
     Active Substance: PANTOPRAZOLE SODIUM
     Dosage: HEARTBURN 40MG ORAL  1X/D WHEN NEEDED; AS REQUIRED
     Route: 048
     Dates: start: 20190520, end: 20190602
  12. TANTUM VERDE GURGELLSG [Concomitant]
     Indication: INFLUENZA
     Dates: start: 20171111, end: 20171123
  13. ASPIRIN C [Concomitant]
     Active Substance: ACETAMINOPHEN\ASCORBIC ACID
     Dosage: FLU  ASPIRIN C 400/240 MG P.O.  2X/D
     Dates: start: 20171111, end: 20171123
  14. LEVOXACIN [Concomitant]
     Active Substance: LEVOFLOXACIN
     Indication: HELICOBACTER INFECTION
     Dosage: 500 MG ORAL 2X TGL
     Route: 048
     Dates: start: 20191227, end: 20200102
  15. NAPROBENE [Concomitant]
     Active Substance: NAPROXEN
     Dosage: HEADACHE 500MG P.O. 1X/D  P.O. AM 07.05.2017
     Dates: start: 20170507
  16. NOVALGIN GTT [Concomitant]
     Indication: NECK PAIN
  17. PANTOPRAZOL [Concomitant]
     Active Substance: PANTOPRAZOLE SODIUM
     Indication: GASTRITIS
     Dosage: HEARTBURN 40MG ORAL 20.10.2019 ONGOING, 1X/D
     Route: 048
     Dates: start: 20191020
  18. GASTROLOC                          /00661201/ [Concomitant]
     Active Substance: OMEPRAZOLE
     Indication: HELICOBACTER INFECTION
     Dosage: 40 MG ORAL  03.01.2020 ONGOING  1X/D, INDICATION HEARTBURN
     Route: 048
     Dates: start: 20200103
  19. AEROMUC [Concomitant]
     Active Substance: ACETYLCYSTEINE
     Indication: INFLUENZA
     Dosage: 600MG ORAL 1X/D  2X/D
     Route: 048
     Dates: start: 20181126, end: 20181203
  20. SUCRALAN 1G/5ML [Concomitant]
     Indication: DYSPEPSIA
     Dosage: 1G/5ML  ORAL 4X/D
     Route: 048
     Dates: start: 20191029, end: 20191112
  21. RHINOSPRAY [Concomitant]
     Active Substance: TRAMAZOLINE HYDROCHLORIDE
     Indication: INFLUENZA
     Dosage: 0.18MG NASAL  3X/D
     Route: 045
     Dates: start: 20171111, end: 20171123
  22. DESLORATADINE. [Concomitant]
     Active Substance: DESLORATADINE
     Dosage: 5MG ORAL AS NEEDED 18.11.2019  ONGOING; AS REQUIRED
     Route: 048
     Dates: start: 20191118
  23. NOVALGIN GTT [Concomitant]
     Indication: ARTHRALGIA
     Dosage: 25GTT ORAL 1X/D
     Route: 048
     Dates: start: 20190225, end: 20190311
  24. EASYANGIN SPRAY [Concomitant]
     Indication: INFLUENZA
     Dosage: 2 STROKES ORAL 1X/D
     Route: 048
     Dates: start: 20190201, end: 20190207
  25. RISANKIZUMAB [Suspect]
     Active Substance: RISANKIZUMAB
     Indication: PSORIASIS
     Route: 058
     Dates: start: 20170508, end: 20200505
  26. RISANKIZUMAB [Suspect]
     Active Substance: RISANKIZUMAB
     Indication: CLINICAL TRIAL PARTICIPANT
  27. LEVOFLOXACIN. [Concomitant]
     Active Substance: LEVOFLOXACIN
     Indication: HELICOBACTER INFECTION
     Dosage: 500MG  ORAL  2X/D
     Route: 048
     Dates: start: 20191227, end: 20200102
  28. CANDIO HERNAL SOFTPASTE [Concomitant]
     Indication: INTERTRIGO
     Dosage: TOPICAL 2X/D 1 FINGERSP.
     Route: 061
     Dates: start: 20171023, end: 20171106
  29. AMOXICILLIN. [Concomitant]
     Active Substance: AMOXICILLIN
     Indication: INFLUENZA
     Dosage: 1000MG  ORAL   2X/D
     Route: 048
     Dates: start: 20181126, end: 20181203
  30. STELARA [Suspect]
     Active Substance: USTEKINUMAB
     Route: 058
  31. DESLORATADINE. [Concomitant]
     Active Substance: DESLORATADINE
     Indication: PRURITUS
     Dosage: 5 MG ORAL  03.02.2020 ONGOING   BEI BED;
     Route: 048
     Dates: start: 20200203
  32. PANTOPRAZOL [Concomitant]
     Active Substance: PANTOPRAZOLE SODIUM
     Indication: DYSPEPSIA
     Dosage: GASTRITIS 40MG ORAL ONGOING  1X/D
     Route: 048
  33. GASTROLOC                          /00661201/ [Concomitant]
     Active Substance: OMEPRAZOLE
     Route: 048
     Dates: start: 20191220, end: 20200102
  34. NAPROBENE [Concomitant]
     Active Substance: NAPROXEN
     Indication: HEADACHE
     Dosage: 500MG P.O. 1X/D P.O.
     Dates: start: 20170505, end: 20170505
  35. VOLTADOL GEL [Concomitant]
     Indication: ARTHRALGIA
  36. BIOFLORIN [Concomitant]
     Indication: GASTROENTERITIS
     Dosage: 254,7 MG  P.O. 3X/D 09.01.2018  16.01.2018
     Route: 048
     Dates: start: 20180109, end: 20180116
  37. ASPIRIN COMPLEX                    /00725201/ [Concomitant]
     Indication: HEADACHE
     Dosage: ASPIRIN COMPLEX 500/30MG  1X/D P.O.
     Dates: start: 20170507, end: 20170507

REACTIONS (6)
  - Dyspnoea [Not Recovered/Not Resolved]
  - Lung transplant [Not Recovered/Not Resolved]
  - Candida infection [Unknown]
  - Cough [Not Recovered/Not Resolved]
  - Interstitial lung disease [Unknown]
  - Interstitial lung disease [Recovered/Resolved with Sequelae]

NARRATIVE: CASE EVENT DATE: 202002
